FAERS Safety Report 17856069 (Version 1)
Quarter: 2020Q2

REPORT INFORMATION
  Report Type: Spontaneous
  Country: CN (occurrence: CN)
  Receive Date: 20200603
  Receipt Date: 20200603
  Transmission Date: 20200714
  Serious: Yes (Hospitalization, Disabling)
  Sender: FDA-Public Use
  Company Number: CN-ASTRAZENECA-2020SE70118

PATIENT
  Age: 24962 Day
  Sex: Female
  Weight: 57 kg

DRUGS (2)
  1. IRESSA [Suspect]
     Active Substance: GEFITINIB
     Indication: METASTASES TO BONE
     Route: 048
     Dates: start: 20200413, end: 20200511
  2. IRESSA [Suspect]
     Active Substance: GEFITINIB
     Indication: LUNG CARCINOMA CELL TYPE UNSPECIFIED STAGE 0
     Route: 048
     Dates: start: 20200413, end: 20200511

REACTIONS (4)
  - Headache [Unknown]
  - Fatigue [Unknown]
  - Drug-induced liver injury [Recovering/Resolving]
  - Dizziness [Unknown]

NARRATIVE: CASE EVENT DATE: 20200511
